FAERS Safety Report 17103324 (Version 11)
Quarter: 2024Q1

REPORT INFORMATION
  Report Type: Spontaneous
  Country: CA (occurrence: CA)
  Receive Date: 20191203
  Receipt Date: 20240304
  Transmission Date: 20240410
  Serious: Yes (Other)
  Sender: FDA-Public Use
  Company Number: None

PATIENT

DRUGS (28)
  1. INFLECTRA [Suspect]
     Active Substance: INFLIXIMAB-DYYB
     Indication: Psoriatic arthropathy
     Dosage: 5 MG/KG (490 MG) AT 0, 2, 6 WEEKS, THEN EVERY 8 WEEKS
     Route: 042
     Dates: start: 20190620
  2. INFLECTRA [Suspect]
     Active Substance: INFLIXIMAB-DYYB
     Dosage: 5 MG/KG (490 MG) AT 0, 2, 6 WEEKS, THEN EVERY 8 WEEKS
     Route: 042
     Dates: start: 20190703
  3. INFLECTRA [Suspect]
     Active Substance: INFLIXIMAB-DYYB
     Dosage: 5 MG/KG (490 MG) AT 0, 2, 6 WEEKS, THEN EVERY 8 WEEKS
     Route: 042
     Dates: start: 20190731
  4. INFLECTRA [Suspect]
     Active Substance: INFLIXIMAB-DYYB
     Dosage: 5 MG/KG (490 MG) AT 0, 2, 6 WEEKS, THEN EVERY 8 WEEKS
     Route: 042
     Dates: start: 20190924, end: 20190924
  5. INFLECTRA [Suspect]
     Active Substance: INFLIXIMAB-DYYB
     Dosage: 5 MG/KG (490 MG) AT 0, 2, 6 WEEKS, THEN EVERY 8 WEEKS (RE-INDUCTION)
     Route: 042
     Dates: start: 20200603
  6. INFLECTRA [Suspect]
     Active Substance: INFLIXIMAB-DYYB
     Dosage: 5 MG/KG (490 MG) AT 0, 2, 6 WEEKS, THEN EVERY 8 WEEKS (RE-INDUCTION)
     Route: 042
     Dates: start: 20200616
  7. INFLECTRA [Suspect]
     Active Substance: INFLIXIMAB-DYYB
     Dosage: 5 MG/KG (490 MG) AT 0, 2, 6 WEEKS, THEN EVERY 8 WEEKS (RE-INDUCTION)
     Route: 042
     Dates: start: 20200716
  8. INFLECTRA [Suspect]
     Active Substance: INFLIXIMAB-DYYB
     Dosage: 5 MG/KG (490 MG) AT 0, 2, 6 WEEKS, THEN EVERY 8 WEEKS (RE-INDUCTION)
     Route: 042
     Dates: start: 20200908
  9. INFLECTRA [Suspect]
     Active Substance: INFLIXIMAB-DYYB
     Dosage: 5 MG/KG (490 MG) AFTER13 WEEKS AND 2 DAYS (PRESCRIBED WAS EVERY 8 WEEKS)
     Route: 042
     Dates: start: 20201210
  10. INFLECTRA [Suspect]
     Active Substance: INFLIXIMAB-DYYB
     Dosage: 5 MG/KG, EVERY 8 WEEKS
     Route: 042
     Dates: start: 20231107
  11. INFLECTRA [Suspect]
     Active Substance: INFLIXIMAB-DYYB
     Dosage: 620 MG, EVERY 8 WEEKS (N/A AFTER 12 WEEKS)
     Route: 042
     Dates: start: 20240130
  12. ACETAMINOPHEN [Concomitant]
     Active Substance: ACETAMINOPHEN
     Dosage: 650 MG, UNK
     Route: 048
  13. ACETAMINOPHEN [Concomitant]
     Active Substance: ACETAMINOPHEN
     Dosage: 650 MG, UNK
     Route: 048
     Dates: start: 20190703, end: 20190703
  14. ACETAMINOPHEN [Concomitant]
     Active Substance: ACETAMINOPHEN
     Dosage: 650 MG, UNK
     Route: 048
     Dates: start: 20190924, end: 20190924
  15. ACETAMINOPHEN [Concomitant]
     Active Substance: ACETAMINOPHEN
     Dosage: 650 MG, UNK
     Route: 048
     Dates: start: 20200716, end: 20200716
  16. AMLODIPINE [Concomitant]
     Active Substance: AMLODIPINE BESYLATE
     Dosage: 5 MG, 1X/DAY
     Route: 065
     Dates: start: 2017
  17. DIPHENHYDRAMINE [Concomitant]
     Active Substance: DIPHENHYDRAMINE
     Dosage: 25 MG, UNK
  18. DIPHENHYDRAMINE [Concomitant]
     Active Substance: DIPHENHYDRAMINE
     Dosage: 25 MG, UNK
     Dates: start: 20190703, end: 20190703
  19. DIPHENHYDRAMINE [Concomitant]
     Active Substance: DIPHENHYDRAMINE
     Dosage: 25 MG, UNK
     Dates: start: 20190924, end: 20190924
  20. DIPHENHYDRAMINE [Concomitant]
     Active Substance: DIPHENHYDRAMINE
     Dosage: 25 MG, UNK
     Dates: start: 20200716, end: 20200716
  21. FOLIC ACID [Concomitant]
     Active Substance: FOLIC ACID
     Dosage: 1 TAB WEEKLY
     Route: 065
     Dates: start: 2015
  22. METHOTREXATE [Concomitant]
     Active Substance: METHOTREXATE
     Dosage: 2.5 MG, WEEKLY  (10 TABS)
     Route: 065
     Dates: start: 2015
  23. OXYCODONE [Concomitant]
     Active Substance: OXYCODONE\OXYCODONE HYDROCHLORIDE
     Dosage: 20-30 MG, 1X/DAY
     Route: 065
  24. OXYCODONE HYDROCHLORIDE [Concomitant]
     Active Substance: OXYCODONE HYDROCHLORIDE
     Dosage: 20-30 MG, 1X/DAY
     Route: 065
  25. PREDNISONE [Concomitant]
     Active Substance: PREDNISONE
     Dosage: 5 MG OD
     Route: 065
     Dates: start: 2019
  26. SULFASALAZINE [Concomitant]
     Active Substance: SULFASALAZINE
     Dosage: 4 DF, 1X/DAY
     Route: 065
     Dates: start: 2015
  27. SULFASALAZINE [Concomitant]
     Active Substance: SULFASALAZINE
     Dosage: 2000 MG, 1X/DAY (500MG 4 TABS OD (ONCE DAILY) )
     Route: 065
     Dates: start: 2015
  28. SULFASALAZINE [Concomitant]
     Active Substance: SULFASALAZINE
     Dosage: 4 DF, 1X/DAY
     Route: 065
     Dates: start: 2015

REACTIONS (9)
  - Pulmonary oedema [Unknown]
  - Pulmonary fibrosis [Unknown]
  - Cachexia [Unknown]
  - Nasal septal operation [Unknown]
  - Dyspnoea [Unknown]
  - Hypertension [Unknown]
  - Oedema peripheral [Not Recovered/Not Resolved]
  - Off label use [Unknown]
  - Off label use [Unknown]

NARRATIVE: CASE EVENT DATE: 20190703
